FAERS Safety Report 7414592-1 (Version None)
Quarter: 2011Q2

REPORT INFORMATION
  Report Type: 
  Country: None (occurrence: None)
  Receive Date: 20110414
  Receipt Date: 20110405
  Transmission Date: 20111010
  Serious: Yes (Hospitalization)
  Sender: FDA-Public Use
  Company Number: JP-BRISTOL-MYERS SQUIBB COMPANY-14528392

PATIENT
  Age: 31 Year
  Sex: Male

DRUGS (9)
  1. KOGENATE [Concomitant]
     Indication: HAEMOPHILIA
     Dosage: 1 DOSAGE FORM=1000 MILLION UNIT; 1-3TIMES/MONTH;INJ.DOSE NOT CHANGED.
     Route: 042
  2. AMMONIUM GLYCYRRHIZINATE [Concomitant]
     Dates: start: 20070418
  3. GLYCYRRHIZINIC ACID [Concomitant]
     Indication: HEPATITIS C
     Dosage: DOSE NOT CHANGED. 3.
     Route: 042
     Dates: start: 20070418
  4. STOCRIN CAPS 200 MG [Suspect]
     Indication: HIV INFECTION
     Dosage: THERAPY START DATE: 25-APR-2005
     Route: 048
     Dates: start: 20050425, end: 20080713
  5. TRUVADA [Suspect]
     Indication: HIV INFECTION
     Dosage: TABS; THERAPY START DATE: 24-MAY-2005
     Route: 048
     Dates: start: 20050524
  6. PARIET [Concomitant]
     Indication: GASTRITIS
     Dosage: TAB
     Route: 048
     Dates: end: 20080323
  7. OCTOCOG ALPHA [Concomitant]
     Indication: HAEMOPHILIA
  8. CYSTEINE [Concomitant]
     Indication: HEPATITIS C
     Dosage: DOSE NOT CHANGED. 3.
     Route: 042
     Dates: start: 20070418
  9. GLYCINE 1.5% [Concomitant]
     Indication: HEPATITIS C
     Dosage: DOSE NOT CHANGED.3.
     Route: 042
     Dates: start: 20070418

REACTIONS (2)
  - ARTHRITIS BACTERIAL [None]
  - LIVER FUNCTION TEST ABNORMAL [None]
